FAERS Safety Report 17870529 (Version 1)
Quarter: 2020Q2

REPORT INFORMATION
  Report Type: Spontaneous
  Country: US (occurrence: US)
  Receive Date: 20200606
  Receipt Date: 20200606
  Transmission Date: 20200714
  Serious: Yes (Other)
  Sender: FDA-Public Use
  Company Number: None

PATIENT
  Age: 57 Year
  Sex: Female
  Weight: 80.1 kg

DRUGS (7)
  1. PROGESTERONE. [Concomitant]
     Active Substance: PROGESTERONE
  2. NALTREXONE 4.5 MG [Concomitant]
  3. VITAMIN K [Concomitant]
     Active Substance: PHYTONADIONE
  4. VITAMIN D [Concomitant]
     Active Substance: VITAMIN D NOS
  5. NP THYROID [Suspect]
     Active Substance: LEVOTHYROXINE\LIOTHYRONINE
     Indication: HYPOTHYROIDISM
     Dosage: ?          QUANTITY:30 TABLET(S);?
     Route: 060
     Dates: start: 20180630, end: 20200519
  6. VITAMIN B12 [Concomitant]
     Active Substance: CYANOCOBALAMIN
  7. ARMOUR THYROID [Suspect]
     Active Substance: THYROID, PORCINE
     Indication: HYPOTHYROIDISM
     Dosage: ?          QUANTITY:135 TABLET(S);?
     Route: 060
     Dates: start: 20200524, end: 20200525

REACTIONS (9)
  - Laboratory test abnormal [None]
  - Heart rate increased [None]
  - Muscular weakness [None]
  - Recalled product administered [None]
  - Feeling abnormal [None]
  - Insomnia [None]
  - Palpitations [None]
  - Tremor [None]
  - Product measured potency issue [None]

NARRATIVE: CASE EVENT DATE: 20200519
